FAERS Safety Report 7476301-X (Version None)
Quarter: 2011Q2

REPORT INFORMATION
  Report Type: 
  Country: None (occurrence: None)
  Receive Date: 20110510
  Receipt Date: 20110510
  Transmission Date: 20111010
  Serious: No
  Sender: FDA-Public Use
  Company Number: None

PATIENT
  Age: 57 Year
  Sex: Male
  Weight: 83.0083 kg

DRUGS (3)
  1. CIMZIA [Suspect]
     Indication: COLITIS ULCERATIVE
     Dosage: 400 MG BIWEEKLY; 200 MG BIWEEKLY
     Dates: start: 20110314
  2. CIMZIA [Suspect]
     Indication: COLITIS ULCERATIVE
     Dosage: 400 MG BIWEEKLY; 200 MG BIWEEKLY
     Dates: start: 20110411
  3. CIMZIA [Suspect]
     Indication: COLITIS ULCERATIVE
     Dosage: 400 MG BIWEEKLY; 200 MG BIWEEKLY
     Dates: start: 20110328

REACTIONS (1)
  - PEMPHIGOID [None]
